FAERS Safety Report 7212888-X (Version None)
Quarter: 2011Q1

REPORT INFORMATION
  Report Type: 
  Country: None (occurrence: None)
  Receive Date: 20110106
  Receipt Date: 20101230
  Transmission Date: 20110831
  Serious: Yes (Other)
  Sender: FDA-Public Use
  Company Number: PHHY2010IT89587

PATIENT
  Sex: Female

DRUGS (3)
  1. BACTROBAN [Concomitant]
     Dosage: 2 POSOLOGIC UNITS
     Route: 061
     Dates: start: 20101115, end: 20101121
  2. BENEXOL [Concomitant]
     Dosage: UNK
     Dates: start: 20101115
  3. FAMVIR [Suspect]
     Indication: HERPES ZOSTER
     Dosage: 1500 MG, UNK
     Route: 048
     Dates: start: 20101115, end: 20101121

REACTIONS (2)
  - HYPERTENSION [None]
  - HEADACHE [None]
